FAERS Safety Report 8372360-0 (Version None)
Quarter: 2012Q2

REPORT INFORMATION
  Report Type: 
  Country: None (occurrence: None)
  Receive Date: 20120521
  Receipt Date: 20120515
  Transmission Date: 20120825
  Serious: No
  Sender: FDA-Public Use
  Company Number: US-PFIZER INC-2012077555

PATIENT
  Sex: Female
  Weight: 81.633 kg

DRUGS (2)
  1. IBUPROFEN (ADVIL) [Suspect]
     Indication: MUSCULOSKELETAL DISCOMFORT
     Dosage: UNK, 1X/DAY
     Route: 048
     Dates: start: 20120201, end: 20120326
  2. NAPROXEN (ALEVE) [Suspect]
     Dosage: UNK
     Route: 048
     Dates: start: 20120301, end: 20120326

REACTIONS (2)
  - PRODUCT COMMINGLING [None]
  - WRONG DRUG ADMINISTERED [None]
